FAERS Safety Report 9331288 (Version 1)
Quarter: 2013Q2

REPORT INFORMATION
  Report Type: Spontaneous
  Country: DK (occurrence: DK)
  Receive Date: 20130605
  Receipt Date: 20130605
  Transmission Date: 20140414
  Serious: Yes (Hospitalization, Other)
  Sender: FDA-Public Use
  Company Number: DK-PFIZER INC-2012058939

PATIENT
  Age: 31 Year
  Sex: Female
  Weight: 56 kg

DRUGS (2)
  1. CYTOTEC [Suspect]
     Indication: LABOUR INDUCTION
     Dosage: 50 UG, SINGLE
     Route: 067
     Dates: start: 20120116, end: 20120116
  2. ELTROXIN [Concomitant]
     Indication: METABOLIC DISORDER

REACTIONS (9)
  - Off label use [Unknown]
  - Incorrect drug dosage form administered [Unknown]
  - Foetal death [Not Recovered/Not Resolved]
  - Uterine haemorrhage [Unknown]
  - Premature separation of placenta [Unknown]
  - Abdominal pain [Recovered/Resolved]
  - Hepatitis [Recovering/Resolving]
  - Hepatic enzyme increased [Recovering/Resolving]
  - Hepatomegaly [Unknown]
